FAERS Safety Report 5929942-2 (Version None)
Quarter: 2008Q4

REPORT INFORMATION
  Report Type: 
  Country: None (occurrence: None)
  Receive Date: 20081024
  Receipt Date: 20081013
  Transmission Date: 20090506
  Serious: Yes (Hospitalization, Other)
  Sender: FDA-Public Use
  Company Number: DE-PFIZER INC-2008071018

PATIENT
  Sex: Male
  Weight: 88 kg

DRUGS (1)
  1. CHAMPIX [Suspect]
     Indication: SMOKING CESSATION THERAPY
     Dosage: DAILY DOSE:1MG
     Route: 048
     Dates: start: 20080813

REACTIONS (7)
  - CHEST DISCOMFORT [None]
  - CHEST PAIN [None]
  - DYSPNOEA [None]
  - ISCHAEMIA [None]
  - MUSCLE SPASMS [None]
  - PALPITATIONS [None]
  - RHINORRHOEA [None]
